FAERS Safety Report 23898132 (Version 3)
Quarter: 2024Q4

REPORT INFORMATION
  Report Type: Report from Study
  Country: US (occurrence: US)
  Receive Date: 20240524
  Receipt Date: 20241007
  Transmission Date: 20250114
  Serious: No
  Sender: SANOFI AVENTIS
  Company Number: US-SA-SAC20240522001167

PATIENT
  Age: 33 Year
  Sex: Female

DRUGS (4)
  1. DUPILUMAB [Suspect]
     Active Substance: DUPILUMAB
     Indication: Eosinophilic oesophagitis
     Dosage: 300 MG, QW
     Route: 058
     Dates: start: 20240520
  2. DUPILUMAB [Suspect]
     Active Substance: DUPILUMAB
     Indication: Neurodermatitis
  3. DUPILUMAB [Suspect]
     Active Substance: DUPILUMAB
     Indication: Dermatitis atopic
  4. DUPILUMAB [Suspect]
     Active Substance: DUPILUMAB
     Indication: Asthma

REACTIONS (19)
  - Injection site pain [Unknown]
  - Injection site erythema [Unknown]
  - Malaise [Recovering/Resolving]
  - Pain [Unknown]
  - Pharyngeal swelling [Recovering/Resolving]
  - Limb discomfort [Recovering/Resolving]
  - Hyperkeratosis [Recovering/Resolving]
  - Wound [Recovering/Resolving]
  - Hypokinesia [Unknown]
  - Scab [Recovering/Resolving]
  - Influenza like illness [Unknown]
  - Feeling abnormal [Unknown]
  - Muscle spasms [Unknown]
  - Condition aggravated [Unknown]
  - Pruritus [Unknown]
  - Neurodermatitis [Unknown]
  - Skin lesion [Unknown]
  - Arthralgia [Recovering/Resolving]
  - Rash [Not Recovered/Not Resolved]

NARRATIVE: CASE EVENT DATE: 20240101
